FAERS Safety Report 23208541 (Version 2)
Quarter: 2025Q2

REPORT INFORMATION
  Report Type: Report from Study
  Country: IT (occurrence: IT)
  Receive Date: 20231121
  Receipt Date: 20250426
  Transmission Date: 20250717
  Serious: Yes (Other)
  Sender: AUROBINDO
  Company Number: IT-AUROBINDO-AUR-APL-2023-073879

PATIENT
  Age: 21 Month
  Sex: Female

DRUGS (2)
  1. LEVETIRACETAM [Suspect]
     Active Substance: LEVETIRACETAM
     Indication: Seizure
     Route: 065
  2. PHENOBARBITAL [Suspect]
     Active Substance: PHENOBARBITAL
     Indication: Seizure
     Route: 065

REACTIONS (1)
  - Drug ineffective [Unknown]
